FAERS Safety Report 23672468 (Version 7)
Quarter: 2024Q3

REPORT INFORMATION
  Report Type: Spontaneous
  Country: US (occurrence: US)
  Receive Date: 20240326
  Receipt Date: 20240923
  Transmission Date: 20241017
  Serious: No
  Sender: PFIZER
  Company Number: US-PFIZER INC-PV202200000715

PATIENT
  Age: 15 Year
  Sex: Male
  Weight: 64.86 kg

DRUGS (3)
  1. GENOTROPIN [Suspect]
     Active Substance: SOMATROPIN
     Indication: Growth disorder
     Dosage: 1.4 MG
     Dates: start: 202205
  2. GENOTROPIN [Suspect]
     Active Substance: SOMATROPIN
     Dosage: 1.8 MG, DAILY
  3. GENOTROPIN [Suspect]
     Active Substance: SOMATROPIN
     Dosage: ONCE A DAY, 1.8, ASSUMES DOSAGE UNITS IS MG
     Dates: start: 202205

REACTIONS (7)
  - Product dose omission issue [Unknown]
  - Expired device used [Unknown]
  - Product storage error [Unknown]
  - Device failure [Unknown]
  - Device leakage [Unknown]
  - Device issue [Unknown]
  - Product temperature excursion issue [Unknown]

NARRATIVE: CASE EVENT DATE: 20240101
